FAERS Safety Report 15946396 (Version 1)
Quarter: 2019Q1

REPORT INFORMATION
  Report Type: Spontaneous
  Country: US (occurrence: US)
  Receive Date: 20190119
  Receipt Date: 20190119
  Transmission Date: 20190417
  Serious: Yes (Hospitalization)
  Sender: FDA-Public Use
  Company Number: None

PATIENT
  Age: 63 Year
  Sex: Female
  Weight: 60.3 kg

DRUGS (3)
  1. DEXAMETHASONE. [Suspect]
     Active Substance: DEXAMETHASONE
     Dates: end: 20190104
  2. VELCADE [Suspect]
     Active Substance: BORTEZOMIB
     Dates: end: 20190103
  3. LENALIDOMIDE (CC-5013) [Suspect]
     Active Substance: LENALIDOMIDE
     Dates: end: 20190106

REACTIONS (5)
  - Gastrointestinal wall thickening [None]
  - Diarrhoea haemorrhagic [None]
  - Pyrexia [None]
  - Abdominal pain [None]
  - Clostridium test positive [None]

NARRATIVE: CASE EVENT DATE: 20190108
